FAERS Safety Report 25098689 (Version 2)
Quarter: 2025Q1

REPORT INFORMATION
  Report Type: Spontaneous
  Country: SI (occurrence: SI)
  Receive Date: 20250320
  Receipt Date: 20250327
  Transmission Date: 20250409
  Serious: Yes (Other)
  Sender: GILEAD
  Company Number: SI-GILEAD-2025-0707472

PATIENT
  Age: 79 Year
  Sex: Male

DRUGS (3)
  1. VEMLIDY [Suspect]
     Active Substance: TENOFOVIR ALAFENAMIDE FUMARATE
     Indication: Hepatitis B
     Route: 048
     Dates: start: 2018
  2. TACROLIMUS [Concomitant]
     Active Substance: TACROLIMUS
  3. EVEROLIMUS [Concomitant]
     Active Substance: EVEROLIMUS
     Dates: start: 2024

REACTIONS (1)
  - Renal failure [Not Recovered/Not Resolved]

NARRATIVE: CASE EVENT DATE: 20250101
